FAERS Safety Report 6930399-3 (Version None)
Quarter: 2010Q3

REPORT INFORMATION
  Report Type: 
  Country: None (occurrence: None)
  Receive Date: 20100818
  Receipt Date: 20100806
  Transmission Date: 20110219
  Serious: Yes (Other)
  Sender: FDA-Public Use
  Company Number: DE-PFIZER INC-2010072081

PATIENT
  Age: 36 Year
  Sex: Female

DRUGS (1)
  1. AZULFIDINE [Suspect]
     Indication: CROHN'S DISEASE
     Dosage: 3000 MG/DAY, UNK
     Route: 048
     Dates: start: 20100322, end: 20100610

REACTIONS (2)
  - OEDEMA PERIPHERAL [None]
  - TACHYCARDIA [None]
